FAERS Safety Report 15608559 (Version 1)
Quarter: 2018Q4

REPORT INFORMATION
  Report Type: Report from Study
  Country: US (occurrence: US)
  Receive Date: 20181112
  Receipt Date: 20181112
  Transmission Date: 20190205
  Serious: Yes (Other)
  Sender: FDA-Public Use
  Company Number: US-SHIRE-US201843562

PATIENT
  Age: 51 Year
  Sex: Female

DRUGS (1)
  1. TAKHZYRO [Suspect]
     Active Substance: LANADELUMAB-FLYO
     Indication: IMMUNE SYSTEM DISORDER
     Dosage: 300 ?G, 1X/2WKS
     Route: 058
     Dates: start: 20181008

REACTIONS (1)
  - Epiploic appendagitis [Unknown]

NARRATIVE: CASE EVENT DATE: 201810
